FAERS Safety Report 20758405 (Version 1)
Quarter: 2022Q2

REPORT INFORMATION
  Report Type: Spontaneous
  Country: US (occurrence: None)
  Receive Date: 20220427
  Receipt Date: 20220427
  Transmission Date: 20220720
  Serious: No
  Sender: FDA-Public Use
  Company Number: None

PATIENT

DRUGS (2)
  1. CEPHALEXIN HYDROCHLORIDE [Suspect]
     Active Substance: CEPHALEXIN HYDROCHLORIDE
  2. CEFDINIR [Suspect]
     Active Substance: CEFDINIR

REACTIONS (5)
  - Transcription medication error [None]
  - Product dispensing error [None]
  - Wrong product administered [None]
  - Product monitoring error [None]
  - Rash [None]
